FAERS Safety Report 8593653-8 (Version None)
Quarter: 2012Q3

REPORT INFORMATION
  Report Type: 
  Country: None (occurrence: None)
  Receive Date: 20120814
  Receipt Date: 20120801
  Transmission Date: 20120928
  Serious: No
  Sender: FDA-Public Use
  Company Number: US-ASTRAZENECA-2012SE54473

PATIENT
  Age: 63 Year
  Sex: Female
  Weight: 44 kg

DRUGS (13)
  1. GEMFIBROZIL [Concomitant]
  2. ASPIRIN [Concomitant]
  3. SEROQUEL [Suspect]
     Indication: NERVOUSNESS
     Route: 048
  4. LEVOTHYROXINE SODIUM [Concomitant]
     Indication: THYROID THERAPY
  5. SEROQUEL [Suspect]
     Route: 048
  6. PRAVASTATIN [Concomitant]
  7. SEROQUEL [Suspect]
     Indication: SLEEP DISORDER
     Route: 048
  8. SEROQUEL [Suspect]
     Route: 048
  9. ALENDRONATE SODIUM [Concomitant]
     Indication: OSTEOARTHRITIS
  10. ALENDRONATE SODIUM [Concomitant]
     Indication: OSTEOPOROSIS
  11. METOPROLOL [Concomitant]
     Indication: BLOOD PRESSURE ABNORMAL
  12. AMLODIPINE [Concomitant]
  13. AMITRIPTYLINE HCL [Concomitant]
     Indication: RESTLESS LEGS SYNDROME

REACTIONS (7)
  - DIZZINESS [None]
  - STRESS [None]
  - NASOPHARYNGITIS [None]
  - INSOMNIA [None]
  - MALAISE [None]
  - OFF LABEL USE [None]
  - WEIGHT DECREASED [None]
